FAERS Safety Report 6778910-X (Version None)
Quarter: 2010Q2

REPORT INFORMATION
  Report Type: 
  Country: None (occurrence: None)
  Receive Date: 20100618
  Receipt Date: 20100607
  Transmission Date: 20101027
  Serious: Yes (Other)
  Sender: FDA-Public Use
  Company Number: GB-RANBAXY-2010RR-34723

PATIENT
  Age: 22 Year
  Sex: Female

DRUGS (3)
  1. GABAPENTIN [Suspect]
     Indication: COMPLEX REGIONAL PAIN SYNDROME
     Dosage: 300 MG, TID
  2. FENTANYL [Concomitant]
  3. PROZAC [Concomitant]
     Dosage: 4 MG, QD

REACTIONS (5)
  - DIPLOPIA [None]
  - FATIGUE [None]
  - INFLUENZA LIKE ILLNESS [None]
  - SOMNOLENCE [None]
  - VISION BLURRED [None]
